FAERS Safety Report 6419625-7 (Version None)
Quarter: 2009Q4

REPORT INFORMATION
  Report Type: 
  Country: None (occurrence: None)
  Receive Date: 20091029
  Receipt Date: 20091026
  Transmission Date: 20100525
  Serious: Yes (Congenital Anomaly)
  Sender: FDA-Public Use
  Company Number: A0679363A

PATIENT
  Sex: Male

DRUGS (3)
  1. PAXIL [Suspect]
     Indication: POST-TRAUMATIC STRESS DISORDER
     Dates: start: 19970101, end: 19990101
  2. PAXIL CR [Suspect]
     Indication: DRUG USE FOR UNKNOWN INDICATION
  3. VITAMIN TAB [Concomitant]

REACTIONS (4)
  - BICUSPID AORTIC VALVE [None]
  - CONGENITAL ANOMALY [None]
  - DRUG EXPOSURE DURING PREGNANCY [None]
  - MULTIPLE CONGENITAL ABNORMALITIES [None]
